FAERS Safety Report 6317225-0 (Version None)
Quarter: 2009Q3

REPORT INFORMATION
  Report Type: 
  Country: None (occurrence: None)
  Receive Date: 20090819
  Receipt Date: 20090805
  Transmission Date: 20100115
  Serious: Yes (Other)
  Sender: FDA-Public Use
  Company Number: US-1170570

PATIENT
  Age: 79 Year
  Sex: Female
  Weight: 77.1115 kg

DRUGS (1)
  1. NEVANAC [Suspect]
     Indication: PROPHYLAXIS
     Dosage: 1 GTT X 1 OPHTHALMIC
     Route: 047
     Dates: start: 20070101, end: 20070101

REACTIONS (2)
  - ANAPHYLACTIC REACTION [None]
  - SINUSITIS [None]
